FAERS Safety Report 20844323 (Version 2)
Quarter: 2022Q2

REPORT INFORMATION
  Report Type: Spontaneous
  Country: CN (occurrence: CN)
  Receive Date: 20220518
  Receipt Date: 20220525
  Transmission Date: 20220721
  Serious: Yes (Death, Hospitalization)
  Sender: FDA-Public Use
  Company Number: CN-IGSA-BIG0018856

PATIENT
  Sex: Female

DRUGS (2)
  1. ALBUTEIN [Suspect]
     Active Substance: ALBUMIN HUMAN
     Indication: Product used for unknown indication
     Dosage: 100 MILLILITER, QD
     Route: 042
     Dates: start: 20220225, end: 20220302
  2. SODIUM CHLORIDE [Concomitant]
     Active Substance: SODIUM CHLORIDE
     Dosage: UNK
     Dates: start: 20220302, end: 20220302

REACTIONS (2)
  - Death [Fatal]
  - Suspected product quality issue [Unknown]

NARRATIVE: CASE EVENT DATE: 20220302
